FAERS Safety Report 19072990 (Version 1)
Quarter: 2021Q1

REPORT INFORMATION
  Report Type: Spontaneous
  Country: US (occurrence: US)
  Receive Date: 20210329
  Receipt Date: 20210329
  Transmission Date: 20210420
  Serious: Yes (Other)
  Sender: FDA-Public Use
  Company Number: None

PATIENT
  Age: 62 Year
  Sex: Male
  Weight: 95 kg

DRUGS (1)
  1. CEFAZOLIN (CEFAZOLIN NA 1GM/VIL INJ) [Suspect]
     Active Substance: CEFAZOLIN
     Indication: PREOPERATIVE CARE
     Route: 042
     Dates: start: 20201210, end: 20201210

REACTIONS (5)
  - Sinus tachycardia [None]
  - Wheezing [None]
  - Hypersensitivity [None]
  - Hypotension [None]
  - Cough [None]

NARRATIVE: CASE EVENT DATE: 20201210
